FAERS Safety Report 5880061-3 (Version None)
Quarter: 2008Q3

REPORT INFORMATION
  Report Type: 
  Country: None (occurrence: None)
  Receive Date: 20080912
  Receipt Date: 20080901
  Transmission Date: 20090109
  Serious: Yes (Death, Hospitalization)
  Sender: FDA-Public Use
  Company Number: JP-PFIZER INC-2008067167

PATIENT
  Sex: Female
  Weight: 49 kg

DRUGS (11)
  1. SU-011,248 [Suspect]
     Indication: RENAL CELL CARCINOMA
     Dosage: DAILY DOSE:50MG-FREQ:QD
     Route: 048
     Dates: start: 20080630, end: 20080713
  2. LOXONIN [Concomitant]
     Dosage: FREQ:3 TABLETS/DAY
     Route: 048
  3. MUCOSTA [Concomitant]
     Route: 048
  4. RHYTHMY [Concomitant]
     Route: 048
  5. AMLODIPINE BESYLATE [Concomitant]
     Route: 048
  6. MAGNESIUM OXIDE [Concomitant]
     Route: 048
     Dates: end: 20080711
  7. FAMOTIDINE [Concomitant]
     Route: 048
     Dates: start: 20080630
  8. PASTARON [Concomitant]
     Route: 062
     Dates: start: 20080701
  9. BROCIN-CODEINE [Concomitant]
     Route: 048
     Dates: start: 20080705, end: 20080713
  10. BISOLVON [Concomitant]
     Route: 055
     Dates: start: 20080704
  11. PURSENNID [Concomitant]
     Route: 048
     Dates: start: 20080707

REACTIONS (7)
  - DISEASE PROGRESSION [None]
  - HYPOTHYROIDISM [None]
  - MALAISE [None]
  - MALIGNANT NEOPLASM PROGRESSION [None]
  - PLATELET COUNT DECREASED [None]
  - PLEURAL EFFUSION [None]
  - RENAL CELL CARCINOMA [None]
